FAERS Safety Report 14021920 (Version 1)
Quarter: 2017Q3

REPORT INFORMATION
  Report Type: Spontaneous
  Country: US (occurrence: US)
  Receive Date: 20170928
  Receipt Date: 20170928
  Transmission Date: 20171128
  Serious: Yes (Hospitalization)
  Sender: FDA-Public Use
  Company Number: None

PATIENT
  Age: 26 Year
  Sex: Female
  Weight: 60 kg

DRUGS (1)
  1. VIBERZI [Suspect]
     Active Substance: ELUXADOLINE
     Indication: IRRITABLE BOWEL SYNDROME
     Dates: start: 20170928

REACTIONS (4)
  - Contraindicated product administered [None]
  - Contraindicated drug prescribed [None]
  - Abdominal pain [None]
  - Feeling abnormal [None]

NARRATIVE: CASE EVENT DATE: 20170928
